FAERS Safety Report 23985661 (Version 1)
Quarter: 2024Q2

REPORT INFORMATION
  Report Type: Spontaneous
  Country: CO (occurrence: CO)
  Receive Date: 20240618
  Receipt Date: 20240618
  Transmission Date: 20240716
  Serious: Yes (Hospitalization, Other)
  Sender: FDA-Public Use
  Company Number: CO-SA-SAC20240409001069

PATIENT
  Age: 78 Year
  Sex: Female

DRUGS (1)
  1. PRALUENT [Suspect]
     Active Substance: ALIROCUMAB
     Indication: Type IIa hyperlipidaemia
     Dosage: 75 MG, QOW
     Route: 058
     Dates: start: 202401

REACTIONS (3)
  - Nephritis [Not Recovered/Not Resolved]
  - Blood urine present [Unknown]
  - Wound [Unknown]

NARRATIVE: CASE EVENT DATE: 20240101
